FAERS Safety Report 15482945 (Version 3)
Quarter: 2020Q3

REPORT INFORMATION
  Report Type: Spontaneous
  Country: US (occurrence: US)
  Receive Date: 20181010
  Receipt Date: 20200917
  Transmission Date: 20201102
  Serious: No
  Sender: FDA-Public Use
  Company Number: US-PFIZER INC-2018406374

PATIENT
  Age: 74 Year
  Sex: Female
  Weight: 90.26 kg

DRUGS (2)
  1. PREDNISONE. [Concomitant]
     Active Substance: PREDNISONE
     Dosage: UNK
  2. XELJANZ XR [Suspect]
     Active Substance: TOFACITINIB CITRATE
     Indication: RHEUMATOID ARTHRITIS
     Dosage: 11 MG, DAILY
     Route: 048
     Dates: start: 20180905

REACTIONS (5)
  - Memory impairment [Unknown]
  - Pain [Unknown]
  - Dysphonia [Unknown]
  - Peripheral swelling [Unknown]
  - Productive cough [Unknown]

NARRATIVE: CASE EVENT DATE: 20180927
